FAERS Safety Report 6814121-7 (Version None)
Quarter: 2010Q3

REPORT INFORMATION
  Report Type: 
  Country: None (occurrence: None)
  Receive Date: 20100702
  Receipt Date: 20100416
  Transmission Date: 20110219
  Serious: No
  Sender: FDA-Public Use
  Company Number: A0839228A

PATIENT
  Age: 49 Year
  Sex: Male

DRUGS (6)
  1. ADVAIR DISKUS 100/50 [Suspect]
     Indication: PRODUCT USED FOR UNKNOWN INDICATION
     Route: 055
     Dates: start: 20090112
  2. MEDROL [Concomitant]
  3. COMBIVENT [Concomitant]
  4. RONDEC DM [Concomitant]
  5. NEFAZODONE HCL [Concomitant]
  6. SIMVASTATIN [Concomitant]

REACTIONS (2)
  - ACCIDENTAL OVERDOSE [None]
  - PRODUCT QUALITY ISSUE [None]
